FAERS Safety Report 6860915-1 (Version None)
Quarter: 2010Q3

REPORT INFORMATION
  Report Type: 
  Country: None (occurrence: None)
  Receive Date: 20100715
  Receipt Date: 20100707
  Transmission Date: 20110219
  Serious: Yes (Hospitalization, Other)
  Sender: FDA-Public Use
  Company Number: RB-11049-2010

PATIENT

DRUGS (1)
  1. SUBOXONE [Suspect]
     Indication: DRUG DEPENDENCE
     Dosage: (20MG SUBLINGUAL)
     Route: 060
     Dates: start: 20090101

REACTIONS (6)
  - CARDIAC ARREST [None]
  - CARDIAC FAILURE CONGESTIVE [None]
  - CONVULSION [None]
  - INCORRECT DOSE ADMINISTERED [None]
  - PANCREATITIS RELAPSING [None]
  - SALMONELLOSIS [None]
